FAERS Safety Report 19880143 (Version 2)
Quarter: 2021Q4

REPORT INFORMATION
  Report Type: Report from Study
  Country: US (occurrence: US)
  Receive Date: 20210924
  Receipt Date: 20211122
  Transmission Date: 20220303
  Serious: Yes (Hospitalization)
  Sender: FDA-Public Use
  Company Number: US-BAYER-2021A215574

PATIENT
  Sex: Male
  Weight: 99.773 kg

DRUGS (22)
  1. ADEMPAS [Suspect]
     Active Substance: RIOCIGUAT
     Indication: Pulmonary arterial hypertension
     Dosage: UNK
     Route: 048
     Dates: start: 20200218
  2. ADEMPAS [Suspect]
     Active Substance: RIOCIGUAT
     Indication: Pulmonary arterial hypertension
     Dosage: 2.5 MG, TID
     Route: 048
  3. OPSUMIT [Concomitant]
     Active Substance: MACITENTAN
  4. UPTRAVI [Concomitant]
     Active Substance: SELEXIPAG
  5. ALLOPURINOL [Concomitant]
     Active Substance: ALLOPURINOL
  6. ASPIRIN [Concomitant]
     Active Substance: ASPIRIN
     Dosage: 81 MG
  7. ATORVASTATIN [Concomitant]
     Active Substance: ATORVASTATIN
  8. CYANOCOBALAMIN [Concomitant]
     Active Substance: CYANOCOBALAMIN
     Dosage: 1000 UNK
  9. FINASTERIDE [Concomitant]
     Active Substance: FINASTERIDE
     Dosage: 1 DF, QD
  10. FOLIC ACID [Concomitant]
     Active Substance: FOLIC ACID
  11. FUROSEMIDE [Concomitant]
     Active Substance: FUROSEMIDE
  12. GABAPENTIN [Concomitant]
     Active Substance: GABAPENTIN
     Dosage: 2 DF, QD
  13. LORAZEPAM [Concomitant]
     Active Substance: LORAZEPAM
  14. MACITENTAN [Concomitant]
     Active Substance: MACITENTAN
     Dosage: 10 MG, QD
     Route: 048
  15. METOCLOPRAMIDE [Concomitant]
     Active Substance: METOCLOPRAMIDE
  16. VITAMINS [Concomitant]
     Active Substance: VITAMINS
  17. SIFRIN NEBULIZER [Concomitant]
  18. OMEPRAZOL ABCUR [Concomitant]
  19. ONDANSETRON [Concomitant]
     Active Substance: ONDANSETRON
  20. ALBUTEROL SULFATE [Concomitant]
     Active Substance: ALBUTEROL SULFATE
  21. SERTRALINE [Concomitant]
     Active Substance: SERTRALINE HYDROCHLORIDE
  22. SPIRONOLACTONE [Concomitant]
     Active Substance: SPIRONOLACTONE
     Dosage: 25 MG, QD

REACTIONS (6)
  - Dyspnoea [None]
  - Hypoaesthesia [None]
  - Hypoaesthesia oral [None]
  - Fall [None]
  - Dizziness [None]
  - Diarrhoea [None]
